FAERS Safety Report 25932009 (Version 2)
Quarter: 2025Q4

REPORT INFORMATION
  Report Type: Spontaneous
  Country: CN (occurrence: CN)
  Receive Date: 20251016
  Receipt Date: 20251224
  Transmission Date: 20260117
  Serious: Yes (Life-Threatening, Other)
  Sender: ELI LILLY AND COMPANY
  Company Number: CN-ELI_LILLY_AND_COMPANY-CN202510017159

PATIENT
  Age: 50 Year
  Sex: Female
  Weight: 75 kg

DRUGS (13)
  1. GEMCITABINE HYDROCHLORIDE [Suspect]
     Active Substance: GEMCITABINE HYDROCHLORIDE
     Indication: Breast cancer
     Dosage: 1.5 G, CYCLICAL
     Route: 041
     Dates: start: 20250701, end: 20250701
  2. GEMCITABINE HYDROCHLORIDE [Suspect]
     Active Substance: GEMCITABINE HYDROCHLORIDE
     Dosage: 1.5 G, CYCLICAL
     Route: 041
     Dates: start: 20250708, end: 20250708
  3. GEMCITABINE HYDROCHLORIDE [Suspect]
     Active Substance: GEMCITABINE HYDROCHLORIDE
     Dosage: 1.5 G, CYCLICAL
     Route: 041
     Dates: start: 20250724, end: 20250724
  4. GEMCITABINE HYDROCHLORIDE [Suspect]
     Active Substance: GEMCITABINE HYDROCHLORIDE
     Dosage: 1.5 G, CYCLICAL
     Route: 041
     Dates: start: 20250731, end: 20250731
  5. PARAPLATIN [Suspect]
     Active Substance: CARBOPLATIN
     Indication: Breast cancer
     Dosage: 589 MG, CYCLICAL
     Route: 041
     Dates: start: 20250701
  6. PARAPLATIN [Suspect]
     Active Substance: CARBOPLATIN
     Dosage: 589 MG, CYCLICAL
     Route: 041
     Dates: start: 20250724, end: 20250724
  7. PARAPLATIN [Suspect]
     Active Substance: CARBOPLATIN
     Dosage: 400 MG, CYCLICAL
     Route: 041
     Dates: start: 20251016, end: 20251016
  8. PARAPLATIN [Suspect]
     Active Substance: CARBOPLATIN
     Dosage: 400 MG, CYCLICAL
     Route: 041
     Dates: start: 20251107
  9. PACLITAXEL [Suspect]
     Active Substance: PACLITAXEL
     Indication: Breast cancer
     Dosage: 240 MG, CYCLICAL
     Route: 041
     Dates: start: 20251016, end: 20251016
  10. PACLITAXEL [Suspect]
     Active Substance: PACLITAXEL
     Dosage: 240 MG, CYCLICAL
     Route: 041
     Dates: start: 20251107, end: 20251107
  11. BEVACIZUMAB [Suspect]
     Active Substance: BEVACIZUMAB
     Indication: Breast cancer
     Dosage: 600 MG, CYCLICAL
     Route: 041
     Dates: start: 20250701, end: 20250701
  12. BEVACIZUMAB [Suspect]
     Active Substance: BEVACIZUMAB
     Dosage: 600 MG, CYCLICAL
     Route: 041
     Dates: start: 20251016, end: 20251016
  13. BEVACIZUMAB [Suspect]
     Active Substance: BEVACIZUMAB
     Dosage: 600 MG, CYCLICAL
     Route: 041
     Dates: start: 20251107, end: 20251107

REACTIONS (4)
  - Myelosuppression [Recovering/Resolving]
  - Agranulocytosis [Recovered/Resolved]
  - Myelosuppression [Recovering/Resolving]
  - White blood cell count decreased [Recovered/Resolved]

NARRATIVE: CASE EVENT DATE: 20250715
